FAERS Safety Report 8552776 (Version 2)
Quarter: 2013Q2

REPORT INFORMATION
  Report Type: Report from Study
  Country: NL (occurrence: NL)
  Receive Date: 20120508
  Receipt Date: 20130508
  Transmission Date: 20140414
  Serious: Yes (Hospitalization)
  Sender: FDA-Public Use
  Company Number: NL-ROCHE-725881

PATIENT
  Age: 54 Year
  Sex: Male
  Weight: 66.9 kg

DRUGS (13)
  1. PEG-INTERFERON ALFA 2A [Suspect]
     Indication: HEPATITIS C
     Dosage: LAST DOSE PRIOR TO AUTO-INTOXICATION: 03/AUG/2010
     Route: 058
  2. PEG-INTERFERON ALFA 2A [Suspect]
     Dosage: LAST DOSE PRIOR TO 2ND EPISODE OF PSORIASIS: 28/DEC/2010
     Route: 058
  3. RIBAVIRIN [Suspect]
     Indication: HEPATITIS C
     Dosage: LAST DOSE PRIOR TO 2ND EPISODE OF PSORIASIS: 04/JAN/2011, AUTO-INTOXICATION: 05/AUG/2010. DOSE REPOR
     Route: 048
  4. CHLOORTALIDON [Concomitant]
     Route: 065
  5. METFORMIN [Concomitant]
     Route: 065
  6. DOVOBET [Concomitant]
  7. LAMOTRIGINE [Concomitant]
     Route: 065
  8. DAIVONEX [Concomitant]
  9. SEROQUEL [Concomitant]
     Route: 065
  10. OXAZEPAM [Concomitant]
     Route: 065
  11. TESACOF [Concomitant]
     Dosage: DRUG REPORTED: TEESCALF.
     Route: 065
  12. DERMOVATE [Concomitant]
     Route: 065
  13. NEOTIGASON [Concomitant]
     Route: 065
     Dates: start: 20100915

REACTIONS (2)
  - Toxicity to various agents [Recovered/Resolved]
  - Psoriasis [Recovered/Resolved]
